FAERS Safety Report 17147235 (Version 1)
Quarter: 2019Q4

REPORT INFORMATION
  Report Type: Spontaneous
  Country: US (occurrence: US)
  Receive Date: 20191212
  Receipt Date: 20191212
  Transmission Date: 20200122
  Serious: No
  Sender: FDA-Public Use
  Company Number: US-ELI_LILLY_AND_COMPANY-US201912003605

PATIENT
  Age: 47 Year
  Sex: Female

DRUGS (3)
  1. HUMALOG [Suspect]
     Active Substance: INSULIN LISPRO
     Dosage: 45 U, PRN (45 UNITS WITH EACH MEAL)
     Route: 058
  2. BASAGLAR [Suspect]
     Active Substance: INSULIN GLARGINE
     Indication: TYPE 2 DIABETES MELLITUS
     Dosage: UNK UNK, UNKNOWN
     Route: 065
  3. HUMALOG [Suspect]
     Active Substance: INSULIN LISPRO
     Indication: TYPE 2 DIABETES MELLITUS
     Dosage: 35 U, PRN (35 UNITS WITH EACH MEAL)
     Route: 058

REACTIONS (7)
  - Hyperhidrosis [Unknown]
  - Dizziness [Unknown]
  - Pancreatic disorder [Unknown]
  - Blood glucose increased [Unknown]
  - Feeling abnormal [Unknown]
  - Palpitations [Unknown]
  - Malaise [Unknown]
